FAERS Safety Report 21989031 (Version 2)
Quarter: 2023Q1

REPORT INFORMATION
  Report Type: Spontaneous
  Country: US (occurrence: US)
  Receive Date: 20230214
  Receipt Date: 20230228
  Transmission Date: 20230417
  Serious: Yes (Other)
  Sender: FDA-Public Use
  Company Number: US-HALEON-USCH2023006463

PATIENT

DRUGS (1)
  1. ALLI [Suspect]
     Active Substance: ORLISTAT
     Indication: Weight decreased
     Dosage: UNK
     Dates: start: 20221012

REACTIONS (3)
  - Liver injury [Recovered/Resolved]
  - Faeces discoloured [Unknown]
  - Liver function test increased [Unknown]

NARRATIVE: CASE EVENT DATE: 20221001
